FAERS Safety Report 6338155-4 (Version None)
Quarter: 2009Q3

REPORT INFORMATION
  Report Type: 
  Country: None (occurrence: None)
  Receive Date: 20090902
  Receipt Date: 20090824
  Transmission Date: 20100115
  Serious: No
  Sender: FDA-Public Use
  Company Number: JP-WYE-H10148009

PATIENT
  Age: 88 Year
  Sex: Female
  Weight: 41 kg

DRUGS (6)
  1. ZOSYN [Suspect]
     Indication: PNEUMONIA
     Route: 041
     Dates: start: 20090611, end: 20090616
  2. CEFTRIAXONE SODIUM [Concomitant]
     Indication: PNEUMONIA
     Dates: start: 20090610, end: 20090611
  3. FERROMIA [Concomitant]
     Route: 048
  4. MEROPEN [Suspect]
     Indication: PNEUMONIA
     Route: 041
     Dates: start: 20090617, end: 20090619
  5. DONEPEZIL HYDROCHLORIDE [Concomitant]
     Route: 048
  6. LOCHOL [Concomitant]
     Route: 048

REACTIONS (10)
  - ALANINE AMINOTRANSFERASE INCREASED [None]
  - ASPARTATE AMINOTRANSFERASE INCREASED [None]
  - BLOOD ALKALINE PHOSPHATASE INCREASED [None]
  - BLOOD IMMUNOGLOBULIN E INCREASED [None]
  - DRUG ERUPTION [None]
  - EOSINOPHIL PERCENTAGE INCREASED [None]
  - HYPERSENSITIVITY [None]
  - LIVER DISORDER [None]
  - PAIN IN EXTREMITY [None]
  - URTICARIA [None]
